FAERS Safety Report 12286766 (Version 2)
Quarter: 2016Q2

REPORT INFORMATION
  Report Type: Spontaneous
  Country: CN (occurrence: CN)
  Receive Date: 20160420
  Receipt Date: 20160429
  Transmission Date: 20160815
  Serious: Yes (Hospitalization)
  Sender: FDA-Public Use
  Company Number: CN-JNJFOC-20160406394

PATIENT
  Age: 50 Year
  Sex: Female

DRUGS (4)
  1. CEFOTIAM HYDROCHLORIDE [Suspect]
     Active Substance: CEFOTIAM HYDROCHLORIDE
     Indication: PNEUMONIA
     Dosage: FOR 2 DAYS
     Route: 042
     Dates: start: 201505, end: 201505
  2. TYLENOL [Suspect]
     Active Substance: ACETAMINOPHEN
     Indication: PYREXIA
     Route: 048
     Dates: start: 20150515, end: 20150515
  3. CEFOTIAM HYDROCHLORIDE [Suspect]
     Active Substance: CEFOTIAM HYDROCHLORIDE
     Indication: PNEUMONIA
     Route: 042
     Dates: start: 20150513, end: 20150515
  4. AZITHROMYCIN ANHYDROUS. [Suspect]
     Active Substance: AZITHROMYCIN ANHYDROUS
     Indication: PNEUMONIA
     Route: 042
     Dates: start: 20150515, end: 20150515

REACTIONS (3)
  - Rash [Recovering/Resolving]
  - Drug eruption [Recovering/Resolving]
  - Pruritus [Recovering/Resolving]

NARRATIVE: CASE EVENT DATE: 20150515
